FAERS Safety Report 9866414 (Version 6)
Quarter: 2020Q3

REPORT INFORMATION
  Report Type: Other
  Country: CA (occurrence: CA)
  Receive Date: 20140204
  Receipt Date: 20200824
  Transmission Date: 20201103
  Serious: Yes (Other)
  Sender: FDA-Public Use
  Company Number: CA-ROCHE-1342096

PATIENT
  Age: 51 Year
  Sex: Female

DRUGS (23)
  1. ACETAMINOPHEN. [Concomitant]
     Active Substance: ACETAMINOPHEN
     Indication: PREMEDICATION
     Route: 048
     Dates: start: 20100108
  2. ACTONEL [Concomitant]
     Active Substance: RISEDRONATE SODIUM
  3. PROLIA [Concomitant]
     Active Substance: DENOSUMAB
     Route: 065
  4. CALCIUM [Concomitant]
     Active Substance: CALCIUM
     Route: 048
  5. LANSOPRAZOLE. [Concomitant]
     Active Substance: LANSOPRAZOLE
  6. VITAMIN C [Concomitant]
     Active Substance: ASCORBIC ACID
  7. BENADRYL [Concomitant]
     Active Substance: DIPHENHYDRAMINE HYDROCHLORIDE
     Indication: PREMEDICATION
     Route: 048
     Dates: start: 20100108
  8. DIPHENHYDRAMINE HCL [Concomitant]
     Active Substance: DIPHENHYDRAMINE HYDROCHLORIDE
     Indication: PREMEDICATION
     Route: 048
     Dates: start: 20100108
  9. COVERSYL [Concomitant]
     Active Substance: PERINDOPRIL
  10. DETROL [Concomitant]
     Active Substance: TOLTERODINE TARTRATE
     Route: 048
  11. TYLENOL [Concomitant]
     Active Substance: ACETAMINOPHEN
     Route: 048
     Dates: start: 20140314
  12. PREDNISONE. [Concomitant]
     Active Substance: PREDNISONE
     Route: 048
  13. PLAQUENIL [Concomitant]
     Active Substance: HYDROXYCHLOROQUINE SULFATE
  14. ONDANSETRON [Concomitant]
     Active Substance: ONDANSETRON
  15. KETOPROFEN. [Concomitant]
     Active Substance: KETOPROFEN
     Route: 048
  16. METRONIDAZOLE. [Concomitant]
     Active Substance: METRONIDAZOLE
  17. RITUXAN [Suspect]
     Active Substance: RITUXIMAB
     Route: 042
     Dates: start: 20100108
  18. TYLENOL [Concomitant]
     Active Substance: ACETAMINOPHEN
     Indication: PREMEDICATION
     Route: 048
     Dates: start: 20100108, end: 20130822
  19. METHYLPREDNISOLONE. [Concomitant]
     Active Substance: METHYLPREDNISOLONE
  20. RITUXAN [Suspect]
     Active Substance: RITUXIMAB
     Indication: RHEUMATOID ARTHRITIS
     Dosage: LAST DOSE RECEIVED 22/AUG/2013 AND ON 12/DEC/2016
     Route: 042
     Dates: start: 20080609
  21. NORVASC [Concomitant]
     Active Substance: AMLODIPINE BESYLATE
  22. FERROUS GLUCONATE [Concomitant]
     Active Substance: FERROUS GLUCONATE
  23. SOLU?MEDROL [Concomitant]
     Active Substance: METHYLPREDNISOLONE SODIUM SUCCINATE
     Indication: PREMEDICATION
     Route: 042
     Dates: start: 20100108

REACTIONS (7)
  - Clostridium difficile infection [Not Recovered/Not Resolved]
  - Uterine disorder [Recovering/Resolving]
  - Diarrhoea [Unknown]
  - Nausea [Unknown]
  - Osteoporosis [Unknown]
  - Bladder prolapse [Recovering/Resolving]
  - Urinary tract infection [Not Recovered/Not Resolved]

NARRATIVE: CASE EVENT DATE: 20131226
